FAERS Safety Report 8267914 (Version 2)
Quarter: 2015Q1

REPORT INFORMATION
  Report Type: Spontaneous
  Country: US (occurrence: US)
  Receive Date: 20111129
  Receipt Date: 20150326
  Transmission Date: 20150721
  Serious: Yes (Other)
  Sender: FDA-Public Use
  Company Number: US-ROCHE-786632

PATIENT
  Sex: Male
  Weight: 78.09 kg

DRUGS (1)
  1. ACCUTANE [Suspect]
     Active Substance: ISOTRETINOIN
     Indication: ACNE
     Route: 065
     Dates: start: 199802, end: 199811

REACTIONS (7)
  - Inflammatory bowel disease [Unknown]
  - Aggression [Unknown]
  - Irritable bowel syndrome [Unknown]
  - Mood altered [Unknown]
  - Colitis ulcerative [Unknown]
  - Personality change [Unknown]
  - Intestinal haemorrhage [Unknown]

NARRATIVE: CASE EVENT DATE: 2003
